FAERS Safety Report 10908667 (Version 1)
Quarter: 2015Q1

REPORT INFORMATION
  Report Type: Spontaneous
  Country: CA (occurrence: CA)
  Receive Date: 20150312
  Receipt Date: 20150312
  Transmission Date: 20150721
  Serious: Yes (Other)
  Sender: FDA-Public Use
  Company Number: CA-TEVA-546911ACC

PATIENT
  Age: 78 Year
  Sex: Male
  Weight: 90.8 kg

DRUGS (4)
  1. LUMIGAN [Suspect]
     Active Substance: BIMATOPROST
     Dosage: 1 GTT DAILY;
     Route: 048
  2. METOPROLOL [Suspect]
     Active Substance: METOPROLOL
     Indication: ATRIAL FIBRILLATION
     Dosage: 50 MILLIGRAM DAILY;
     Route: 048
  3. VALSARTAN. [Suspect]
     Active Substance: VALSARTAN
     Indication: ATRIAL FIBRILLATION
     Dosage: 80 MILLIGRAM DAILY;
     Route: 048
  4. PRADAXA [Suspect]
     Active Substance: DABIGATRAN ETEXILATE MESYLATE
     Dosage: 300 MILLIGRAM DAILY;
     Route: 048

REACTIONS (2)
  - Atrial fibrillation [Not Recovered/Not Resolved]
  - Rash [Not Recovered/Not Resolved]
